FAERS Safety Report 11802459 (Version 2)
Quarter: 2016Q1

REPORT INFORMATION
  Report Type: Spontaneous
  Country: US (occurrence: US)
  Receive Date: 20151204
  Receipt Date: 20160321
  Transmission Date: 20160525
  Serious: No
  Sender: FDA-Public Use
  Company Number: US-PFIZER INC-2015424857

PATIENT
  Age: 79 Year
  Sex: Female
  Weight: 68 kg

DRUGS (1)
  1. CORTISONE ACETATE. [Suspect]
     Active Substance: CORTISONE ACETATE
     Indication: PAIN IN EXTREMITY
     Dosage: UNK, EVERY TWO TO THREE WEEKS

REACTIONS (2)
  - Product use issue [Unknown]
  - Injection site pain [Not Recovered/Not Resolved]
